FAERS Safety Report 23241023 (Version 1)
Quarter: 2023Q4

REPORT INFORMATION
  Report Type: Spontaneous
  Country: US (occurrence: None)
  Receive Date: 20231128
  Receipt Date: 20231128
  Transmission Date: 20240110
  Serious: No
  Sender: FDA-Public Use
  Company Number: None

PATIENT
  Age: 67 Year
  Sex: Female

DRUGS (1)
  1. CYANOCOBALAMIN [Suspect]
     Active Substance: CYANOCOBALAMIN
     Indication: Fatigue
     Dosage: FREQUENCY : ONCE;?
     Route: 030
     Dates: end: 20230809

REACTIONS (5)
  - Dizziness [None]
  - Discomfort [None]
  - Fatigue [None]
  - Palpitations [None]
  - Refusal of treatment by patient [None]
